FAERS Safety Report 11916670 (Version 2)
Quarter: 2016Q1

REPORT INFORMATION
  Report Type: Spontaneous
  Country: SE (occurrence: SE)
  Receive Date: 20160114
  Receipt Date: 20160122
  Transmission Date: 20160526
  Serious: Yes (Death, Hospitalization)
  Sender: FDA-Public Use
  Company Number: SE-SA-2016SA005639

PATIENT
  Age: 71 Year
  Sex: Female

DRUGS (18)
  1. CEFOTAXIME [Suspect]
     Active Substance: CEFOTAXIME SODIUM
     Indication: ORGANISING PNEUMONIA
     Route: 065
     Dates: start: 201312
  2. LOSARTAN. [Suspect]
     Active Substance: LOSARTAN
     Indication: HYPERTENSION
     Route: 048
     Dates: start: 2014
  3. CORTISONE [Suspect]
     Active Substance: CORTISONE\HYDROCORTISONE
     Route: 065
     Dates: start: 201312
  4. ARANESP [Concomitant]
     Active Substance: DARBEPOETIN ALFA
  5. AMLODIPINE [Concomitant]
     Active Substance: AMLODIPINE BESYLATE
  6. VAGIFEM [Concomitant]
     Active Substance: ESTRADIOL
  7. ATORVASTATIN [Concomitant]
     Active Substance: ATORVASTATIN
  8. ETALPHA [Concomitant]
     Active Substance: ALFACALCIDOL
  9. PREDNISOLONE. [Concomitant]
     Active Substance: PREDNISOLONE
  10. AVELOX [Suspect]
     Active Substance: MOXIFLOXACIN HYDROCHLORIDE
     Indication: ORGANISING PNEUMONIA
     Route: 065
     Dates: start: 201312
  11. DOXAZOSIN [Concomitant]
     Active Substance: DOXAZOSIN\DOXAZOSIN MESYLATE
  12. FURIX [Concomitant]
     Active Substance: FUROSEMIDE
  13. LORATADINE. [Concomitant]
     Active Substance: LORATADINE
  14. LOSARTAN. [Suspect]
     Active Substance: LOSARTAN
     Indication: HYPERTENSION
     Route: 065
  15. ESOMEPRAZOLE [Concomitant]
     Active Substance: ESOMEPRAZOLE
  16. HUMALOG [Concomitant]
     Active Substance: INSULIN LISPRO
  17. LANTUS [Concomitant]
     Active Substance: INSULIN GLARGINE
  18. ATENOLOL. [Concomitant]
     Active Substance: ATENOLOL

REACTIONS (2)
  - Toxic epidermal necrolysis [Fatal]
  - Stevens-Johnson syndrome [Fatal]

NARRATIVE: CASE EVENT DATE: 20140128
